FAERS Safety Report 10229884 (Version 1)
Quarter: 2014Q2

REPORT INFORMATION
  Report Type: Spontaneous
  Country: US (occurrence: None)
  Receive Date: 20140610
  Receipt Date: 20140610
  Transmission Date: 20141212
  Serious: No
  Sender: FDA-Public Use
  Company Number: None

PATIENT
  Age: 40 Year
  Sex: Female

DRUGS (4)
  1. AMPYRA 10 MG ACORDA [Suspect]
     Indication: MULTIPLE SCLEROSIS
     Route: 048
     Dates: start: 201402
  2. PAROXETINE [Concomitant]
  3. BACLOFEN [Concomitant]
  4. OXYBUTYNIN [Concomitant]

REACTIONS (2)
  - Nausea [None]
  - Vomiting [None]
